FAERS Safety Report 10186382 (Version 1)
Quarter: 2014Q2

REPORT INFORMATION
  Report Type: Spontaneous
  Country: US (occurrence: US)
  Receive Date: 20140521
  Receipt Date: 20140521
  Transmission Date: 20141212
  Serious: No
  Sender: FDA-Public Use
  Company Number: US-ASTRAZENECA-2014SE05537

PATIENT
  Age: 58 Year
  Sex: Male
  Weight: 149.7 kg

DRUGS (4)
  1. PULMICORT FLEXHALER [Suspect]
     Indication: CHRONIC OBSTRUCTIVE PULMONARY DISEASE
     Dosage: 180 MCG BID
     Route: 055
     Dates: start: 20140116
  2. LISINOPRIL [Suspect]
     Indication: CARDIAC DISORDER
     Dosage: 20MG 12.5 DAILY
     Route: 048
  3. PROZAC [Suspect]
     Indication: ANXIETY
     Route: 048
     Dates: start: 20140116
  4. ATIVAN [Concomitant]
     Indication: ANXIETY
     Dosage: UNKNOWN PRN
     Route: 048

REACTIONS (11)
  - Nausea [Unknown]
  - Dizziness [Unknown]
  - Abdominal pain upper [Unknown]
  - Renal pain [Unknown]
  - Asthenia [Not Recovered/Not Resolved]
  - Decreased appetite [Unknown]
  - Gait disturbance [Unknown]
  - Diarrhoea [Recovering/Resolving]
  - Hyperchlorhydria [Unknown]
  - Eating disorder [Unknown]
  - Off label use [Unknown]
